FAERS Safety Report 5956552-3 (Version None)
Quarter: 2008Q4

REPORT INFORMATION
  Report Type: 
  Country: None (occurrence: None)
  Receive Date: 20081118
  Receipt Date: 20081110
  Transmission Date: 20090506
  Serious: Yes (Disabling)
  Sender: FDA-Public Use
  Company Number: CA-ASTRAZENECA-2008UW22008

PATIENT
  Age: 18168 Day
  Sex: Female

DRUGS (6)
  1. ATACAND [Suspect]
     Indication: HYPERTENSION
     Route: 048
     Dates: start: 20080714, end: 20080905
  2. MAXERAN [Concomitant]
     Indication: GASTROOESOPHAGEAL REFLUX DISEASE
     Dates: start: 19980101
  3. IMOVANE [Concomitant]
     Indication: INSOMNIA
     Dates: start: 20060101
  4. NAPROXEN [Concomitant]
     Indication: INFLAMMATION
     Dates: start: 20070101
  5. PREVACID [Concomitant]
     Indication: REFLUX OESOPHAGITIS
     Dates: start: 19980101
  6. LIPITOR [Concomitant]
     Indication: BLOOD CHOLESTEROL
     Dosage: 20 MG
     Dates: start: 19980101

REACTIONS (3)
  - ERYTHEMA INDURATUM [None]
  - FATIGUE [None]
  - RASH [None]
